FAERS Safety Report 13617617 (Version 1)
Quarter: 2017Q2

REPORT INFORMATION
  Report Type: Spontaneous
  Country: US (occurrence: US)
  Receive Date: 20170606
  Receipt Date: 20170606
  Transmission Date: 20170830
  Serious: No
  Sender: FDA-Public Use
  Company Number: US-SA-2017SA050551

PATIENT
  Age: 54 Year
  Sex: Male

DRUGS (6)
  1. LANTUS SOLOSTAR [Suspect]
     Active Substance: INSULIN GLARGINE
     Indication: DIABETES MELLITUS
     Route: 065
     Dates: end: 201703
  2. GLIPIZIDE. [Concomitant]
     Active Substance: GLIPIZIDE
     Indication: DIABETES MELLITUS
     Dates: start: 2011
  3. LANTUS SOLOSTAR [Suspect]
     Active Substance: INSULIN GLARGINE
     Indication: DIABETIC NEUROPATHY
     Route: 065
     Dates: end: 201703
  4. SOLOSTAR [Concomitant]
     Active Substance: DEVICE
     Indication: DIABETES MELLITUS
     Dates: end: 201703
  5. METFORMIN [Concomitant]
     Active Substance: METFORMIN HYDROCHLORIDE
     Indication: DIABETES MELLITUS
     Dates: start: 2011
  6. SOLOSTAR [Concomitant]
     Active Substance: DEVICE
     Indication: DIABETIC NEUROPATHY
     Dates: end: 201703

REACTIONS (5)
  - Musculoskeletal disorder [Unknown]
  - Neck injury [Unknown]
  - Drug dose omission [Unknown]
  - Drug dispensing error [Unknown]
  - Blood glucose increased [Unknown]

NARRATIVE: CASE EVENT DATE: 2017
